FAERS Safety Report 5400198-2 (Version None)
Quarter: 2007Q3

REPORT INFORMATION
  Report Type: 
  Country: None (occurrence: None)
  Receive Date: 20070730
  Receipt Date: 20070717
  Transmission Date: 20080115
  Serious: Yes (Hospitalization)
  Sender: FDA-Public Use
  Company Number: CA-AVENTIS-200713536EU

PATIENT
  Age: 66 Year
  Sex: Male

DRUGS (8)
  1. ENOXAPARIN SODIUM [Suspect]
     Route: 058
     Dates: start: 20070114, end: 20070128
  2. PLACEBO [Suspect]
     Route: 048
     Dates: start: 20070115, end: 20070208
  3. APO-LISINOPRIL [Concomitant]
  4. CRESTOR [Concomitant]
  5. VITAMIN E [Concomitant]
  6. TYLENOL (CAPLET) [Concomitant]
  7. OMEGA 3-6-9 [Concomitant]
  8. LOTRIDERM                          /00820601/ [Concomitant]

REACTIONS (1)
  - DYSPNOEA [None]
